FAERS Safety Report 26185097 (Version 1)
Quarter: 2025Q4

REPORT INFORMATION
  Report Type: Spontaneous
  Country: US (occurrence: US)
  Receive Date: 20251222
  Receipt Date: 20251222
  Transmission Date: 20260117
  Serious: Yes (Death, Hospitalization, Other)
  Sender: IPCA
  Company Number: US-IPCA LABORATORIES LIMITED-IPC-2025-US-003537

PATIENT

DRUGS (1)
  1. BUPROPION HYDROCHLORIDE [Suspect]
     Active Substance: BUPROPION HYDROCHLORIDE
     Indication: Product used for unknown indication
     Dosage: 12 GRAM
     Route: 048

REACTIONS (14)
  - Toxic cardiomyopathy [Fatal]
  - Hypoxia [Fatal]
  - Cardiogenic shock [Fatal]
  - Cardiac arrest [Fatal]
  - Electrocardiogram QT prolonged [Fatal]
  - Ventricular tachycardia [Fatal]
  - Circulatory collapse [Fatal]
  - Shock [Fatal]
  - Seizure [Fatal]
  - Metabolic acidosis [Fatal]
  - Respiratory disorder [Fatal]
  - Obstruction [Fatal]
  - Toxicity to various agents [Fatal]
  - Overdose [Unknown]
